FAERS Safety Report 6161136-0 (Version None)
Quarter: 2009Q2

REPORT INFORMATION
  Report Type: 
  Country: None (occurrence: None)
  Receive Date: 20090421
  Receipt Date: 20071121
  Transmission Date: 20091009
  Serious: Yes (Death, Hospitalization, Other)
  Sender: FDA-Public Use
  Company Number: US-ASTRAZENECA-2006UW22624

PATIENT
  Age: 27753 Day
  Sex: Female
  Weight: 75.7 kg

DRUGS (18)
  1. SEROQUEL [Suspect]
     Indication: DEPRESSION
     Route: 048
     Dates: start: 19970101
  2. HALDOL [Concomitant]
  3. RISPERDAL [Concomitant]
     Route: 048
  4. ZYPREXA [Concomitant]
     Route: 048
  5. FOSAMAX [Concomitant]
  6. CARDURA [Concomitant]
  7. ARICEPT [Concomitant]
  8. ENDAL [Concomitant]
  9. ALPRAZOLAM [Concomitant]
  10. PREMARIN [Concomitant]
  11. BUSPAR [Concomitant]
  12. ZOLOFT [Concomitant]
  13. ASPIRIN [Concomitant]
  14. HALOPERIDOL [Concomitant]
  15. TYLENOL [Concomitant]
  16. VALIUM [Concomitant]
  17. REMERON [Concomitant]
  18. PROVIGIL [Concomitant]

REACTIONS (8)
  - CONSTIPATION [None]
  - GASTRITIS ATROPHIC [None]
  - HAEMORRHOIDS [None]
  - HYPERTENSION [None]
  - MYOCARDIAL INFARCTION [None]
  - PANCREATITIS [None]
  - PELVIC FRACTURE [None]
  - VAGINAL CYST [None]
